FAERS Safety Report 6682424-5 (Version None)
Quarter: 2010Q2

REPORT INFORMATION
  Report Type: 
  Country: None (occurrence: None)
  Receive Date: 20100414
  Receipt Date: 20100414
  Transmission Date: 20101027
  Serious: Yes (Disabling)
  Sender: FDA-Public Use
  Company Number: None

PATIENT
  Age: 73 Year
  Sex: Female
  Weight: 75 kg

DRUGS (2)
  1. ETHAMBUTOL HYDROCHLORIDE [Suspect]
     Indication: LUNG DISORDER
     Dosage: ETHAMBUTOL 400MG 3 X DAILY ORAL
     Route: 048
     Dates: start: 20090701, end: 20100101
  2. ETHAMBUTOL HYDROCHLORIDE [Suspect]
     Indication: MYCOBACTERIUM AVIUM COMPLEX INFECTION
     Dosage: ETHAMBUTOL 400MG 3 X DAILY ORAL
     Route: 048
     Dates: start: 20090701, end: 20100101

REACTIONS (1)
  - BLINDNESS [None]
